FAERS Safety Report 5441357-2 (Version None)
Quarter: 2007Q3

REPORT INFORMATION
  Report Type: 
  Country: None (occurrence: None)
  Receive Date: 20070903
  Receipt Date: 20070828
  Transmission Date: 20080115
  Serious: Yes (Hospitalization, Other)
  Sender: FDA-Public Use
  Company Number: PHNR2007AU01456

PATIENT
  Sex: Male

DRUGS (9)
  1. ZOMETA [Suspect]
     Indication: OSTEOPOROSIS
     Dosage: UNK, ONCE/SINGLE
     Dates: start: 20060801
  2. AVAPRO [Suspect]
     Dosage: 37.5 MG, UNK
     Route: 048
  3. AVAPRO [Suspect]
     Dosage: 300 MG, DAILY
     Route: 048
     Dates: end: 20070705
  4. MODURETIC 5-50 [Concomitant]
     Dosage: HALF A TABLET THREE TIMES A WEEK
     Route: 048
  5. MODURETIC 5-50 [Concomitant]
     Dosage: 1 TABLET DAILY
     Route: 048
  6. FELODIPINE [Suspect]
  7. ALLOPURINOL [Suspect]
     Dosage: 100 MG, DAILY
  8. CALCIUM [Concomitant]
  9. COLCHICINE [Concomitant]
     Indication: GOUT
     Dosage: UNK, PRN

REACTIONS (10)
  - ANTINUCLEAR ANTIBODY INCREASED [None]
  - BLOOD PRESSURE INCREASED [None]
  - CONSTIPATION [None]
  - DYSPNOEA [None]
  - MALAISE [None]
  - OEDEMA PERIPHERAL [None]
  - RASH [None]
  - RASH PAPULAR [None]
  - SKIN IRRITATION [None]
  - STEVENS-JOHNSON SYNDROME [None]
